FAERS Safety Report 9533745 (Version 2)
Quarter: 2013Q3

REPORT INFORMATION
  Report Type: Report from Study
  Country: BR (occurrence: BR)
  Receive Date: 20130918
  Receipt Date: 20130918
  Transmission Date: 20140515
  Serious: Yes (Other)
  Sender: FDA-Public Use
  Company Number: BR-BAYER-2012-114644

PATIENT
  Age: 83 Year
  Sex: Male
  Weight: 61 kg

DRUGS (9)
  1. NEXAVAR [Suspect]
     Indication: RENAL CANCER
     Dosage: 4 DF, QD
     Route: 048
     Dates: start: 20120725
  2. NEXAVAR [Suspect]
     Indication: RENAL CANCER
     Dosage: 2 DF, BID (800 MG/DAY)
  3. PACO [Concomitant]
     Indication: INTERVERTEBRAL DISC PROTRUSION
     Dosage: UNK
     Route: 048
     Dates: start: 20120730, end: 201208
  4. GABAPENTIN [Concomitant]
     Indication: CARTILAGE HYPERTROPHY
     Dosage: 1 DF, HS
     Route: 048
     Dates: start: 201208, end: 201303
  5. ACETYLSALICYLIC ACID [Concomitant]
     Indication: CARDIAC DISORDER
     Dosage: 1 DF, QD
     Route: 048
     Dates: start: 201205
  6. ACETYLSALICYLIC ACID [Concomitant]
     Indication: CARDIAC DISORDER
     Dosage: 1 DF, QOD
     Route: 048
  7. CLOPIDOGREL [Concomitant]
     Indication: CARDIAC DISORDER
     Dosage: 1 DF, QD
     Route: 048
     Dates: start: 201205, end: 201305
  8. AMIODARONE [Concomitant]
     Indication: ARRHYTHMIA
     Dosage: 1 DF, QOD (IN THE MORNING)
     Route: 048
  9. AMIODARONE [Concomitant]
     Indication: ARRHYTHMIA
     Dosage: 2 DF, BID
     Route: 048
     Dates: start: 20120725

REACTIONS (12)
  - Palmar-plantar erythrodysaesthesia syndrome [Unknown]
  - Gait disturbance [Unknown]
  - Blood pressure fluctuation [Not Recovered/Not Resolved]
  - Feeling cold [Recovering/Resolving]
  - Skin exfoliation [Unknown]
  - Blister infected [Unknown]
  - Pain in extremity [Unknown]
  - Constipation [Not Recovered/Not Resolved]
  - Decreased appetite [Recovering/Resolving]
  - Dry skin [Unknown]
  - Skin hypertrophy [Unknown]
  - Weight decreased [Recovering/Resolving]
